FAERS Safety Report 7039272-6 (Version None)
Quarter: 2010Q3

REPORT INFORMATION
  Report Type: 
  Country: None (occurrence: None)
  Receive Date: 20100929
  Receipt Date: 20100719
  Transmission Date: 20110219
  Serious: Yes (Other)
  Sender: FDA-Public Use
  Company Number: US-WYE-H16387510

PATIENT
  Age: 61 Year
  Sex: Female

DRUGS (4)
  1. PRISTIQ [Suspect]
     Indication: DEPRESSION
     Dosage: 50 MG 1X PER 1 DAY, ORAL; 50 MG 1X PER 2 DAY, ORAL
     Route: 048
     Dates: start: 20100501, end: 20100601
  2. PRISTIQ [Suspect]
     Indication: DEPRESSION
     Dosage: 50 MG 1X PER 1 DAY, ORAL; 50 MG 1X PER 2 DAY, ORAL
     Route: 048
     Dates: start: 20100601, end: 20100601
  3. WELLBUTRIN [Suspect]
     Indication: DEPRESSION
  4. SYNTHROID [Concomitant]

REACTIONS (2)
  - BLOOD PRESSURE INCREASED [None]
  - DRUG INTERACTION [None]
